FAERS Safety Report 10572187 (Version 1)
Quarter: 2014Q4

REPORT INFORMATION
  Report Type: Report from Study
  Country: BR (occurrence: BR)
  Receive Date: 20141108
  Receipt Date: 20141108
  Transmission Date: 20150529
  Serious: Yes (Death)
  Sender: FDA-Public Use
  Company Number: BR-ABBVIE-14K-020-1305116-00

PATIENT
  Sex: Female
  Weight: 75 kg

DRUGS (2)
  1. UNSPECIFIED MEDICATION [Suspect]
     Active Substance: UNSPECIFIED INGREDIENT
     Indication: PRODUCT USED FOR UNKNOWN INDICATION
     Route: 065
  2. HUMIRA [Suspect]
     Active Substance: ADALIMUMAB
     Indication: RHEUMATOID ARTHRITIS
     Route: 058
     Dates: start: 20111204, end: 20131001

REACTIONS (2)
  - Acute respiratory failure [Fatal]
  - Pneumonia aspiration [Fatal]
